FAERS Safety Report 13359938 (Version 9)
Quarter: 2024Q1

REPORT INFORMATION
  Report Type: Spontaneous
  Country: FR (occurrence: FR)
  Receive Date: 20170322
  Receipt Date: 20240328
  Transmission Date: 20240409
  Serious: Yes (Life-Threatening, Other)
  Sender: FDA-Public Use
  Company Number: FR-PFIZER INC-2017118142

PATIENT
  Age: 51 Year
  Sex: Male
  Weight: 89 kg

DRUGS (6)
  1. FLUCONAZOLE [Interacting]
     Active Substance: FLUCONAZOLE
     Indication: Urinary tract infection fungal
     Dosage: 800 MG, DAILY
     Route: 042
     Dates: start: 20160422, end: 20160422
  2. FLUCONAZOLE [Interacting]
     Active Substance: FLUCONAZOLE
     Dosage: 400 MG, DAILY
     Dates: start: 20160423
  3. OXYCODONE [Interacting]
     Active Substance: OXYCODONE\OXYCODONE HYDROCHLORIDE
     Indication: Pain
     Dosage: 60 MG, 2X/DAY
     Dates: start: 20160412, end: 201604
  4. OXYCODONE [Interacting]
     Active Substance: OXYCODONE\OXYCODONE HYDROCHLORIDE
     Dosage: 10 MG, EVERY 4 HRS
     Dates: start: 20160412, end: 201604
  5. DIAZEPAM [Interacting]
     Active Substance: DIAZEPAM
     Dosage: 6 MG, UNK
     Route: 048
  6. PREGABALIN [Interacting]
     Active Substance: PREGABALIN
     Dosage: 200 MG, 2X/DAY
     Route: 048

REACTIONS (2)
  - Drug interaction [Recovering/Resolving]
  - Respiratory depression [Recovering/Resolving]

NARRATIVE: CASE EVENT DATE: 20160423
